FAERS Safety Report 16018487 (Version 2)
Quarter: 2019Q2

REPORT INFORMATION
  Report Type: Spontaneous
  Country: PT (occurrence: PT)
  Receive Date: 20190228
  Receipt Date: 20190401
  Transmission Date: 20190711
  Serious: Yes (Other)
  Sender: FDA-Public Use
  Company Number: PT-PFIZER INC-2019068501

PATIENT
  Age: 70 Year
  Sex: Male

DRUGS (5)
  1. LYRICA [Suspect]
     Active Substance: PREGABALIN
     Indication: NEURALGIA
     Dosage: 75 MG, 2X/DAY
     Route: 048
     Dates: start: 2018
  2. PAROXETINE. [Concomitant]
     Active Substance: PAROXETINE
     Dosage: UNK
  3. LYRICA [Suspect]
     Active Substance: PREGABALIN
     Indication: FIBROMYALGIA
     Dosage: 75 MG, 1X/DAY
     Route: 048
     Dates: start: 201902
  4. PAROXETINE. [Concomitant]
     Active Substance: PAROXETINE
     Indication: DEPRESSION
     Dosage: UNK
     Dates: end: 2018
  5. LYRICA [Suspect]
     Active Substance: PREGABALIN
     Indication: ANXIETY
     Dosage: 100 MG, 4X/DAY
     Route: 048
     Dates: start: 2018

REACTIONS (10)
  - Somnolence [Not Recovered/Not Resolved]
  - Carotid artery occlusion [Recovering/Resolving]
  - Depression [Not Recovered/Not Resolved]
  - Intentional product use issue [Unknown]
  - Increased appetite [Recovering/Resolving]
  - Semen volume decreased [Not Recovered/Not Resolved]
  - Weight increased [Recovering/Resolving]
  - Blood testosterone increased [Unknown]
  - Aphasia [Recovered/Resolved]
  - Amnesia [Recovered/Resolved]
